FAERS Safety Report 9125440 (Version 2)
Quarter: 2013Q2

REPORT INFORMATION
  Report Type: Report from Study
  Country: US (occurrence: US)
  Receive Date: 20130227
  Receipt Date: 20130401
  Transmission Date: 20140414
  Serious: Yes (Life-Threatening, Hospitalization)
  Sender: FDA-Public Use
  Company Number: US-GLAXOSMITHKLINE-A1013875A

PATIENT
  Sex: Female

DRUGS (3)
  1. PAZOPANIB [Suspect]
     Indication: THYROID CANCER
     Dosage: 600MG PER DAY
     Route: 048
     Dates: start: 20121212, end: 20130210
  2. PACLITAXEL [Suspect]
     Indication: THYROID CANCER
     Dosage: 80MGM2 WEEKLY
     Route: 042
     Dates: start: 20121212
  3. RADIOTHERAPY [Suspect]
     Indication: THYROID CANCER
     Dosage: 2GY PER DAY
     Dates: start: 20121212

REACTIONS (3)
  - Bronchitis [Recovered/Resolved]
  - Hypoxia [Recovering/Resolving]
  - Sepsis [Recovered/Resolved]
